FAERS Safety Report 10146608 (Version 1)
Quarter: 2014Q2

REPORT INFORMATION
  Report Type: Spontaneous
  Country: ES (occurrence: ES)
  Receive Date: 20140501
  Receipt Date: 20140501
  Transmission Date: 20141212
  Serious: Yes (Other)
  Sender: FDA-Public Use
  Company Number: PHHY2014ES051977

PATIENT
  Age: 78 Year
  Sex: Female

DRUGS (1)
  1. TIMOGEL [Suspect]
     Indication: GLAUCOMA
     Dosage: UNK (1 MG/G)
     Route: 031
     Dates: start: 20130702, end: 20130702

REACTIONS (2)
  - Bradycardia [Recovered/Resolved]
  - Hypotension [Recovered/Resolved]
